FAERS Safety Report 18842617 (Version 10)
Quarter: 2021Q4

REPORT INFORMATION
  Report Type: Spontaneous
  Country: PL (occurrence: PL)
  Receive Date: 20210203
  Receipt Date: 20211027
  Transmission Date: 20220303
  Serious: Yes (Hospitalization, Other)
  Sender: FDA-Public Use
  Company Number: PL-MYLANLABS-2021M1006393

PATIENT
  Age: 68 Year
  Sex: Male

DRUGS (32)
  1. QUETIAPINE [Interacting]
     Active Substance: QUETIAPINE
     Indication: Insomnia
     Dosage: 25 MILLIGRAM, QD (INITIAL DOSE AT NIGHT)
     Route: 065
  2. QUETIAPINE [Interacting]
     Active Substance: QUETIAPINE
     Dosage: 50 MILLIGRAM, QD (INCREASED AT NIGHT)
  3. QUETIAPINE [Interacting]
     Active Substance: QUETIAPINE
     Dosage: 50 MILLIGRAM
  4. ATORVASTATIN [Interacting]
     Active Substance: ATORVASTATIN
     Indication: Cerebrovascular accident
     Dosage: 40 MILLIGRAM
     Route: 048
  5. ATORVASTATIN [Interacting]
     Active Substance: ATORVASTATIN
     Indication: Atrial fibrillation
     Dosage: 40 MILLIGRAM, QD
  6. RIVAROXABAN [Interacting]
     Active Substance: RIVAROXABAN
     Indication: Cerebrovascular accident
     Dosage: 20 MILLIGRAM
     Route: 048
  7. RIVAROXABAN [Interacting]
     Active Substance: RIVAROXABAN
     Indication: Atrial fibrillation
  8. METOPROLOL [Interacting]
     Active Substance: METOPROLOL
     Indication: Cerebrovascular accident
     Dosage: 100 MILLIGRAM
     Route: 048
  9. METOPROLOL [Interacting]
     Active Substance: METOPROLOL
     Indication: Atrial fibrillation
     Dosage: 100 MG, PER DAY
  10. FUROSEMIDE [Interacting]
     Active Substance: FUROSEMIDE
     Indication: Cerebrovascular accident
     Dosage: 40 MILLIGRAM
     Route: 048
  11. FUROSEMIDE [Interacting]
     Active Substance: FUROSEMIDE
     Indication: Atrial fibrillation
  12. FUROSEMIDE [Interacting]
     Active Substance: FUROSEMIDE
     Indication: Cardiovascular disorder
  13. DIAZEPAM [Interacting]
     Active Substance: DIAZEPAM
     Indication: Insomnia
     Dosage: 10 MILLIGRAM, QD
  14. DIAZEPAM [Interacting]
     Active Substance: DIAZEPAM
     Dosage: 10 MILLIGRAM (HALF  HOUR BEFORE BEDTIME)
  15. CIPROFLOXACIN [Interacting]
     Active Substance: CIPROFLOXACIN
     Indication: Infectious disease carrier
     Dosage: 500 MILLIGRAM (2X500MG)
     Route: 048
  16. CIPROFLOXACIN [Interacting]
     Active Substance: CIPROFLOXACIN
     Indication: Antibiotic prophylaxis
     Dosage: 1000 MILLIGRAM, QD
     Route: 048
  17. CIPROFLOXACIN [Interacting]
     Active Substance: CIPROFLOXACIN
     Indication: Pruritus genital
  18. CIPROFLOXACIN [Interacting]
     Active Substance: CIPROFLOXACIN
     Indication: Infection
  19. FLUCONAZOLE [Interacting]
     Active Substance: FLUCONAZOLE
     Indication: Infectious disease carrier
     Dosage: 100 MILLIGRAM, BID
  20. FLUCONAZOLE [Interacting]
     Active Substance: FLUCONAZOLE
     Indication: Antibiotic prophylaxis
     Dosage: 200 MILLIGRAM
  21. FLUCONAZOLE [Interacting]
     Active Substance: FLUCONAZOLE
     Indication: Pruritus genital
     Dosage: 100 MG, 2X PER DAY
  22. FLUCONAZOLE [Interacting]
     Active Substance: FLUCONAZOLE
     Indication: Infection
     Dosage: UNK
  23. CETIRIZINE HYDROCHLORIDE [Interacting]
     Active Substance: CETIRIZINE HYDROCHLORIDE
     Indication: Off label use
     Dosage: 10 MILLIGRAM, QD
  24. CETIRIZINE HYDROCHLORIDE [Interacting]
     Active Substance: CETIRIZINE HYDROCHLORIDE
     Indication: Pruritus genital
  25. XARELTO [Interacting]
     Active Substance: RIVAROXABAN
     Indication: Atrial fibrillation
     Dosage: 20 MILLIGRAM
     Route: 048
  26. TRAZODONE [Interacting]
     Active Substance: TRAZODONE HYDROCHLORIDE
     Indication: Insomnia
     Dosage: 50 MILLIGRAM, QD (3 HOURS BEFORE BEDTIME)
  27. TRAZODONE [Interacting]
     Active Substance: TRAZODONE HYDROCHLORIDE
     Indication: Somnolence
  28. CETIRIZINE [Interacting]
     Active Substance: CETIRIZINE HYDROCHLORIDE
     Indication: Pruritus genital
     Dosage: 10 MILLIGRAM, QD
     Route: 065
  29. CETIRIZINE [Interacting]
     Active Substance: CETIRIZINE HYDROCHLORIDE
     Indication: Somnolence
  30. METOPROLOL [Concomitant]
     Active Substance: METOPROLOL
     Dosage: UNK
  31. FUROSEMIDE [Concomitant]
     Active Substance: FUROSEMIDE
     Dosage: UNK
  32. QUETIAPINE [Concomitant]
     Active Substance: QUETIAPINE
     Dosage: UNK

REACTIONS (15)
  - Pruritus genital [Recovered/Resolved]
  - Penis injury [Recovered/Resolved]
  - Drug interaction [Unknown]
  - Haemorrhage [Unknown]
  - Genital haemorrhage [Unknown]
  - Somnolence [Unknown]
  - Fall [Unknown]
  - Pruritus [Recovered/Resolved]
  - Insomnia [Unknown]
  - Contraindicated product administered [Unknown]
  - Off label use [Unknown]
  - Drug ineffective [Unknown]
  - Drug level increased [Unknown]
  - Product use in unapproved indication [Unknown]
  - Penile haemorrhage [Unknown]
